FAERS Safety Report 10172723 (Version 1)
Quarter: 2014Q2

REPORT INFORMATION
  Report Type: Spontaneous
  Country: RU (occurrence: RU)
  Receive Date: 20140515
  Receipt Date: 20140515
  Transmission Date: 20141212
  Serious: Yes (Death)
  Sender: FDA-Public Use
  Company Number: RU-ROCHE-1400344

PATIENT
  Age: 85 Year
  Sex: Female

DRUGS (1)
  1. BONVIVA [Suspect]
     Indication: OSTEOPOROSIS POSTMENOPAUSAL
     Route: 042
     Dates: end: 201401

REACTIONS (1)
  - Cardiac disorder [Fatal]
